FAERS Safety Report 9779273 (Version 2)
Quarter: 2014Q1

REPORT INFORMATION
  Report Type: Spontaneous
  Country: US (occurrence: US)
  Receive Date: 20131223
  Receipt Date: 20140128
  Transmission Date: 20141002
  Serious: No
  Sender: FDA-Public Use
  Company Number: US-PFIZER INC-2013364889

PATIENT
  Age: 72 Year
  Sex: Female

DRUGS (6)
  1. CELEBREX [Suspect]
     Dosage: 200 MG, 1X/DAY
     Route: 048
  2. CITALOPRAM [Concomitant]
     Dosage: 10 MG, UNK
  3. CRESTOR [Concomitant]
     Dosage: 20 MG, UNK
  4. FUROSEMIDE [Concomitant]
     Dosage: 40 MG, UNK
  5. GLUCOPHAGE [Concomitant]
     Dosage: 500 MG, UNK
  6. LISINOPRIL [Concomitant]
     Dosage: 5 MG, UNK

REACTIONS (1)
  - Arthritis [Unknown]
